FAERS Safety Report 9027306 (Version 1)
Quarter: 2013Q1

REPORT INFORMATION
  Report Type: Spontaneous
  Country: IT (occurrence: IT)
  Receive Date: 20130123
  Receipt Date: 20130123
  Transmission Date: 20140127
  Serious: Yes (Hospitalization)
  Sender: FDA-Public Use
  Company Number: IT-MYLANLABS-2013S1000999

PATIENT
  Age: 63 Year
  Sex: Female

DRUGS (1)
  1. LEVOFLOXACIN [Suspect]
     Indication: CYSTITIS HAEMORRHAGIC
     Route: 065

REACTIONS (3)
  - Status epilepticus [Recovered/Resolved]
  - Depressed level of consciousness [Recovered/Resolved]
  - Neurotoxicity [Recovered/Resolved]
